FAERS Safety Report 8906189 (Version 1)
Quarter: 2012Q4

REPORT INFORMATION
  Report Type: Spontaneous
  Country: US (occurrence: None)
  Receive Date: 20121109
  Receipt Date: 20121109
  Transmission Date: 20130627
  Serious: Yes (Other)
  Sender: FDA-Public Use
  Company Number: None

PATIENT
  Age: 71 Year
  Sex: Female
  Weight: 90.72 kg

DRUGS (1)
  1. ATORVASTATIN [Suspect]
     Indication: HYPERLIPIDEMIA
     Dosage: 10 mg 1qd oral
     Route: 048
     Dates: start: 201201, end: 201208

REACTIONS (3)
  - Hepatitis [None]
  - Hepatic steatosis [None]
  - Product substitution issue [None]
